FAERS Safety Report 13256256 (Version 1)
Quarter: 2017Q1

REPORT INFORMATION
  Report Type: Spontaneous
  Country: US (occurrence: US)
  Receive Date: 20170220
  Receipt Date: 20170220
  Transmission Date: 20170428
  Serious: No
  Sender: FDA-Public Use
  Company Number: None

PATIENT
  Age: 60 Year
  Sex: Female
  Weight: 67.5 kg

DRUGS (1)
  1. YUVAFEM [Suspect]
     Active Substance: ESTRADIOL HEMIHYDRATE
     Indication: HORMONE REPLACEMENT THERAPY
     Dosage: ?          OTHER STRENGTH:MCG;QUANTITY:1 SUPPOSITORY(IES);OTHER FREQUENCY:2X PER WEEK;?
     Route: 067
     Dates: start: 20170106

REACTIONS (3)
  - Device physical property issue [None]
  - Device difficult to use [None]
  - Skin injury [None]

NARRATIVE: CASE EVENT DATE: 20170106
